FAERS Safety Report 7163837-4 (Version None)
Quarter: 2010Q4

REPORT INFORMATION
  Report Type: 
  Country: None (occurrence: None)
  Receive Date: 20101215
  Receipt Date: 20100622
  Transmission Date: 20110411
  Serious: Yes (Other)
  Sender: FDA-Public Use
  Company Number: CH-PFIZER INC-2010077400

PATIENT
  Age: 37 Year
  Sex: Female
  Weight: 66 kg

DRUGS (4)
  1. LYRICA [Suspect]
     Indication: FIBROMYALGIA
     Dosage: 25 MG, 2X/DAY
     Route: 048
     Dates: start: 20090423, end: 20090507
  2. TOLVON [Concomitant]
     Dosage: 30MG AM, 60MG PM
     Route: 048
  3. NOVALGIN [Concomitant]
     Dosage: 500 MG, 3X/DAY
     Route: 048
  4. CIPRALEX [Concomitant]
     Dosage: 10 MG, 1X/DAY
     Route: 048
     Dates: start: 20090101

REACTIONS (4)
  - EYE SWELLING [None]
  - PRURITUS [None]
  - RASH [None]
  - SWELLING FACE [None]
